FAERS Safety Report 8470889-8 (Version None)
Quarter: 2012Q2

REPORT INFORMATION
  Report Type: 
  Country: None (occurrence: None)
  Receive Date: 20120627
  Receipt Date: 20120620
  Transmission Date: 20120825
  Serious: Yes (Other)
  Sender: FDA-Public Use
  Company Number: VE-PFIZER INC-2012149961

PATIENT
  Age: 30 Year
  Sex: Female

DRUGS (1)
  1. NEURONTIN [Suspect]
     Dosage: 600 MG, UNK
     Route: 048
     Dates: start: 20120619

REACTIONS (1)
  - POISONING [None]
